FAERS Safety Report 6157237-3 (Version None)
Quarter: 2009Q2

REPORT INFORMATION
  Report Type: 
  Country: None (occurrence: None)
  Receive Date: 20090413
  Receipt Date: 20090402
  Transmission Date: 20091009
  Serious: Yes (Other)
  Sender: FDA-Public Use
  Company Number: 236811

PATIENT
  Age: 31 Year
  Sex: Female

DRUGS (5)
  1. FLUDARABINPHOSPHAT HOSPIRA 50 MG PULVER TIL INJEKSJONS-/INFUSJONAVRESK [Suspect]
     Indication: ACUTE MYELOID LEUKAEMIA
     Dosage: 30 MG/M2, PER CYCLE, D2-6
  2. CYTARABINE [Suspect]
     Indication: ACUTE MYELOID LEUKAEMIA
     Dosage: 2 X 1 G/M^2, PER CYCLE, D1-3; 1000 MG/M2 (PER CYCLE, D2-6); (PER CYCLE, 3 COURSES)
  3. IDARUBICIN HCL [Suspect]
     Indication: ACUTE MYELOID LEUKAEMIA
     Dosage: 10 MG/M2, PER CYCLE, D2-4
  4. MYLOTARG [Suspect]
     Indication: ACUTE MYELOID LEUKAEMIA
     Dosage: 3 MG/M2, PER CYCLE, D1
  5. MITOXANTRONE [Suspect]
     Indication: ACUTE MYELOID LEUKAEMIA
     Dosage: 10 MG/M2, PER CYCLE, D2-4; 10 MG/M2 (PER CYCLE, D2-4)

REACTIONS (16)
  - CAESAREAN SECTION [None]
  - CANDIDIASIS [None]
  - DRUG EXPOSURE DURING PREGNANCY [None]
  - FEBRILE NEUTROPENIA [None]
  - FUNGAL SEPSIS [None]
  - HEPARIN-INDUCED THROMBOCYTOPENIA [None]
  - HYPERBILIRUBINAEMIA [None]
  - LARYNGITIS VIRAL [None]
  - LEUKAEMIA RECURRENT [None]
  - OVARIAN DISORDER [None]
  - PLACENTAL INSUFFICIENCY [None]
  - PNEUMONIA CYTOMEGALOVIRAL [None]
  - PREGNANCY [None]
  - STEM CELL TRANSPLANT [None]
  - THROMBOCYTOPENIA [None]
  - VENOUS THROMBOSIS [None]
